FAERS Safety Report 7168101-5 (Version None)
Quarter: 2010Q4

REPORT INFORMATION
  Report Type: 
  Country: None (occurrence: None)
  Receive Date: 20101216
  Receipt Date: 20101206
  Transmission Date: 20110411
  Serious: Yes (Other)
  Sender: FDA-Public Use
  Company Number: US-CELGENEUS-163-21880-10111755

PATIENT
  Sex: Male

DRUGS (2)
  1. REVLIMID [Suspect]
     Route: 048
     Dates: start: 20101008
  2. REVLIMID [Suspect]
     Route: 048
     Dates: start: 20101101

REACTIONS (2)
  - DYSPNOEA [None]
  - NARCOLEPSY [None]
